FAERS Safety Report 8984911 (Version 1)
Quarter: 2012Q4

REPORT INFORMATION
  Report Type: 
  Country: US (occurrence: US)
  Receive Date: 20121226
  Receipt Date: 20121226
  Transmission Date: 20130627
  Serious: No
  Sender: FDA-Public Use
  Company Number: US-PFIZER INC-2012325070

PATIENT
  Age: 66 Year
  Sex: Female
  Weight: 53.52 kg

DRUGS (3)
  1. LIPITOR [Suspect]
     Indication: HIGH CHOLESTEROL
     Dosage: 20 mg, 1x/day
     Route: 048
  2. FENOFIBRATE [Concomitant]
     Indication: TRIGLYCERIDES HIGH
     Dosage: UNK
  3. NADOLOL [Concomitant]
     Dosage: UNK

REACTIONS (2)
  - Blood triglycerides increased [Unknown]
  - Drug ineffective [Unknown]
